FAERS Safety Report 20874540 (Version 3)
Quarter: 2022Q3

REPORT INFORMATION
  Report Type: Report from Study
  Country: IT (occurrence: IT)
  Receive Date: 20220525
  Receipt Date: 20220705
  Transmission Date: 20221026
  Serious: Yes (Death, Hospitalization, Other)
  Sender: FDA-Public Use
  Company Number: IT-TAKEDA-2022TUS033567

PATIENT
  Sex: Female

DRUGS (1)
  1. HUMAN IMMUNOGLOBULIN G\HYALURONIDASE RECOMBINANT HUMAN [Suspect]
     Active Substance: HUMAN IMMUNOGLOBULIN G\HYALURONIDASE RECOMBINANT HUMAN
     Indication: Plasma cell myeloma
     Dosage: 25 GRAM, Q3WEEKS
     Route: 058
     Dates: start: 20220309, end: 20220413

REACTIONS (4)
  - COVID-19 [Fatal]
  - Acute kidney injury [Not Recovered/Not Resolved]
  - Ureteric compression [Not Recovered/Not Resolved]
  - Abdominal wall neoplasm [Not Recovered/Not Resolved]

NARRATIVE: CASE EVENT DATE: 20220503
